FAERS Safety Report 26034278 (Version 1)
Quarter: 2025Q4

REPORT INFORMATION
  Report Type: Spontaneous
  Country: EU (occurrence: EU)
  Receive Date: 20251112
  Receipt Date: 20251112
  Transmission Date: 20260118
  Serious: Yes (Life-Threatening, Other)
  Sender: Haleon PLC
  Company Number: None

PATIENT
  Age: 64 Year
  Sex: Female
  Weight: 110 kg

DRUGS (1)
  1. IBUPROFEN [Suspect]
     Active Substance: IBUPROFEN
     Indication: Headache
     Dosage: 1
     Route: 048
     Dates: start: 20250324, end: 20250324

REACTIONS (1)
  - Anaphylactic shock [Unknown]
